FAERS Safety Report 13375069 (Version 1)
Quarter: 2017Q1

REPORT INFORMATION
  Report Type: Spontaneous
  Country: JP (occurrence: JP)
  Receive Date: 20170327
  Receipt Date: 20170327
  Transmission Date: 20170429
  Serious: Yes (Hospitalization)
  Sender: FDA-Public Use
  Company Number: JP-BAYER-2017-050730

PATIENT
  Age: 41 Year
  Sex: Female

DRUGS (1)
  1. BAYASPIRIN 100 MG [Suspect]
     Active Substance: ASPIRIN
     Dosage: UNK
     Route: 048

REACTIONS (4)
  - Premature rupture of membranes [Recovered/Resolved]
  - Uterine hypotonus [Recovered/Resolved]
  - Maternal exposure during pregnancy [Recovered/Resolved]
  - Arrested labour [Recovered/Resolved]
